FAERS Safety Report 9654407 (Version 1)
Quarter: 2013Q4

REPORT INFORMATION
  Report Type: Spontaneous
  Country: GB (occurrence: GB)
  Receive Date: 20131029
  Receipt Date: 20131029
  Transmission Date: 20140711
  Serious: Yes (Hospitalization)
  Sender: FDA-Public Use
  Company Number: PHFR2013GB006049

PATIENT
  Age: 2 Year
  Sex: 0

DRUGS (1)
  1. RIAMET [Suspect]

REACTIONS (2)
  - Wrong patient received medication [Unknown]
  - Expired drug administered [Unknown]
